FAERS Safety Report 4855158-7 (Version None)
Quarter: 2005Q4

REPORT INFORMATION
  Report Type: 
  Country: None (occurrence: None)
  Receive Date: 20051215
  Receipt Date: 20051129
  Transmission Date: 20060501
  Serious: Yes (Hospitalization)
  Sender: FDA-Public Use
  Company Number: JP-MERCK-0512USA00077

PATIENT
  Age: 60 Year
  Sex: Male

DRUGS (9)
  1. DECADRON [Suspect]
     Indication: NASOPHARYNGITIS
     Route: 048
     Dates: start: 20051126, end: 20051127
  2. DECADRON [Suspect]
     Route: 048
  3. ASPIRIN [Concomitant]
     Route: 048
  4. ISOSORBIDE MONONITRATE [Concomitant]
     Route: 048
  5. PANALDINE [Suspect]
     Route: 048
  6. PANALDINE [Suspect]
     Route: 048
  7. THYRADIN [Concomitant]
     Route: 048
  8. SIGMART [Concomitant]
     Route: 065
  9. FLOMOX [Concomitant]
     Indication: NASOPHARYNGITIS
     Route: 048
     Dates: start: 20051123, end: 20051125

REACTIONS (4)
  - ALANINE AMINOTRANSFERASE INCREASED [None]
  - ASPARTATE AMINOTRANSFERASE INCREASED [None]
  - PYREXIA [None]
  - RASH [None]
